FAERS Safety Report 5747421-2 (Version None)
Quarter: 2008Q2

REPORT INFORMATION
  Report Type: 
  Country: None (occurrence: None)
  Receive Date: 20080523
  Receipt Date: 20080513
  Transmission Date: 20081010
  Serious: Yes (Other)
  Sender: FDA-Public Use
  Company Number: US-BAYER-200822589NA

PATIENT
  Sex: Female

DRUGS (1)
  1. NEXAVAR [Suspect]
     Indication: DESMOPLASTIC SMALL ROUND CELL TUMOUR

REACTIONS (2)
  - DESMOPLASTIC SMALL ROUND CELL TUMOUR [None]
  - PALMAR-PLANTAR ERYTHRODYSAESTHESIA SYNDROME [None]
